FAERS Safety Report 13332564 (Version 4)
Quarter: 2019Q1

REPORT INFORMATION
  Report Type: Spontaneous
  Country: JP (occurrence: JP)
  Receive Date: 20170314
  Receipt Date: 20190102
  Transmission Date: 20190417
  Serious: Yes (Hospitalization)
  Sender: FDA-Public Use
  Company Number: JP-ACTELION-A-CH2016-146223

PATIENT
  Age: 87 Year
  Sex: Female
  Weight: 52.75 kg

DRUGS (23)
  1. MOSAPRIDE CITRATE [Concomitant]
     Active Substance: MOSAPRIDE CITRATE
     Indication: PRODUCT USED FOR UNKNOWN INDICATION
  2. ATORVASTATIN [Concomitant]
     Active Substance: ATORVASTATIN
     Indication: PRODUCT USED FOR UNKNOWN INDICATION
  3. DIART [Suspect]
     Active Substance: AZOSEMIDE
     Dosage: 30 MG, QD
     Route: 048
     Dates: start: 20170413
  4. DIART [Suspect]
     Active Substance: AZOSEMIDE
     Indication: RIGHT VENTRICULAR FAILURE
     Dosage: 30 MG, QD
     Route: 048
  5. MAGMITT [Concomitant]
     Active Substance: MAGNESIUM OXIDE
     Indication: PRODUCT USED FOR UNKNOWN INDICATION
  6. RIVASTACH [Concomitant]
     Active Substance: RIVASTIGMINE
     Indication: PRODUCT USED FOR UNKNOWN INDICATION
  7. AMLODIPINE [Concomitant]
     Active Substance: AMLODIPINE BESYLATE
     Indication: PRODUCT USED FOR UNKNOWN INDICATION
  8. SENNOSIDE [Concomitant]
     Active Substance: SENNOSIDES
     Indication: PRODUCT USED FOR UNKNOWN INDICATION
  9. REMINYL [Concomitant]
     Active Substance: GALANTAMINE
  10. OPSUMIT [Suspect]
     Active Substance: MACITENTAN
     Indication: PULMONARY ARTERIAL HYPERTENSION
     Dosage: 10 MG, OD
     Route: 048
     Dates: start: 20161104
  11. OPSUMIT [Suspect]
     Active Substance: MACITENTAN
     Dosage: 5 MG, OD
     Route: 048
     Dates: start: 20161031, end: 20161103
  12. THIATON [Concomitant]
     Active Substance: TIQUIZIUM BROMIDE
     Indication: PRODUCT USED FOR UNKNOWN INDICATION
  13. EBRANTIL [Concomitant]
     Active Substance: URAPIDIL
     Indication: PRODUCT USED FOR UNKNOWN INDICATION
  14. ETIZOLAM [Concomitant]
     Active Substance: ETIZOLAM
     Indication: PRODUCT USED FOR UNKNOWN INDICATION
  15. FRANDOL S [Concomitant]
     Active Substance: ISOSORBIDE DINITRATE
     Indication: PRODUCT USED FOR UNKNOWN INDICATION
  16. CARELOAD [Concomitant]
     Active Substance: BERAPROST SODIUM
     Indication: PRODUCT USED FOR UNKNOWN INDICATION
  17. DIART [Suspect]
     Active Substance: AZOSEMIDE
     Dosage: 15 MG, QD
     Route: 048
     Dates: start: 20170302, end: 20170412
  18. MICARDIS [Concomitant]
     Active Substance: TELMISARTAN
     Indication: PRODUCT USED FOR UNKNOWN INDICATION
  19. WARFARIN [Concomitant]
     Active Substance: WARFARIN
     Indication: PRODUCT USED FOR UNKNOWN INDICATION
  20. DIART [Suspect]
     Active Substance: AZOSEMIDE
     Dosage: 15 MG, QD
     Route: 048
     Dates: start: 20161201, end: 20161217
  21. DIART [Suspect]
     Active Substance: AZOSEMIDE
     Dosage: 30 MG, QD
     Route: 048
     Dates: start: 20161218, end: 20170301
  22. MEILAX [Concomitant]
     Active Substance: ETHYL LOFLAZEPATE
     Indication: PRODUCT USED FOR UNKNOWN INDICATION
  23. OXYGEN. [Concomitant]
     Active Substance: OXYGEN
     Indication: PRODUCT USED FOR UNKNOWN INDICATION

REACTIONS (13)
  - Oxygen saturation decreased [Recovering/Resolving]
  - Red blood cell count decreased [Recovering/Resolving]
  - Right ventricular failure [Recovering/Resolving]
  - Anaemia [Recovering/Resolving]
  - Haematocrit decreased [Recovering/Resolving]
  - Blood urea increased [Recovering/Resolving]
  - Blood creatinine increased [Recovering/Resolving]
  - Respiratory disorder [Recovering/Resolving]
  - Haemoglobin decreased [Recovering/Resolving]
  - Concomitant disease aggravated [Recovered/Resolved]
  - Dyspnoea [Recovering/Resolving]
  - Pleural effusion [Recovering/Resolving]
  - Renal impairment [Recovering/Resolving]

NARRATIVE: CASE EVENT DATE: 20161124
